FAERS Safety Report 9831980 (Version 1)
Quarter: 2014Q1

REPORT INFORMATION
  Report Type: Report from Study
  Country: US (occurrence: US)
  Receive Date: 20140121
  Receipt Date: 20140121
  Transmission Date: 20141002
  Serious: Yes (Hospitalization, Other)
  Sender: FDA-Public Use
  Company Number: US-ASTRAZENECA-2014SE02592

PATIENT
  Sex: Male

DRUGS (2)
  1. DUTOPROL [Suspect]
     Indication: ANGINA PECTORIS
     Route: 048
  2. METOPROLOL SUCCINATE [Suspect]
     Indication: ANGINA PECTORIS
     Route: 048

REACTIONS (6)
  - Sick sinus syndrome [Unknown]
  - Angina pectoris [Unknown]
  - Atrioventricular block complete [Unknown]
  - Presyncope [Unknown]
  - Syncope [Unknown]
  - Drug dose omission [Unknown]
